FAERS Safety Report 9184135 (Version 1)
Quarter: 2012Q4

REPORT INFORMATION
  Report Type: Report from Study
  Country: US (occurrence: US)
  Receive Date: 20121101
  Receipt Date: 20121101
  Transmission Date: 20130627
  Serious: Yes (Hospitalization, Other)
  Sender: FDA-Public Use
  Company Number: US-JNJFOC-20121016642

PATIENT
  Age: 46 None
  Sex: Female
  Weight: 91.63 kg

DRUGS (7)
  1. REMICADE [Suspect]
     Indication: RHEUMATOID ARTHRITIS
     Dosage: Frequency: every 2 or 3 months
     Route: 042
     Dates: start: 201201
  2. REMICADE [Suspect]
     Indication: RHEUMATOID ARTHRITIS
     Dosage: 6th infusion
     Route: 042
     Dates: start: 20121019, end: 20121019
  3. REMICADE [Suspect]
     Indication: RHEUMATOID ARTHRITIS
     Route: 042
     Dates: start: 201204
  4. METHOTREXATE [Concomitant]
     Indication: RHEUMATOID ARTHRITIS
     Dates: start: 201002, end: 2012
  5. METHOTREXATE [Concomitant]
     Indication: RHEUMATOID ARTHRITIS
     Dates: start: 201204, end: 201210
  6. CYMBALTA [Concomitant]
     Indication: FIBROMYALGIA
     Route: 048
  7. FOLIC ACID [Concomitant]
     Indication: GASTRIC DISORDER
     Dosage: Indication: For methotrexate and stomach
     Route: 048
     Dates: start: 201002

REACTIONS (16)
  - Endometriosis [Unknown]
  - Hypersensitivity [Unknown]
  - Presyncope [Unknown]
  - Swollen tongue [Unknown]
  - Infusion related reaction [Unknown]
  - Uterine leiomyoma [Unknown]
  - Oral disorder [Recovered/Resolved]
  - Fibromyalgia [Not Recovered/Not Resolved]
  - Back disorder [Unknown]
  - Dyspepsia [Not Recovered/Not Resolved]
  - Pruritus [Unknown]
  - Rash [Unknown]
  - Erythema [Unknown]
  - Oropharyngeal pain [Not Recovered/Not Resolved]
  - Nausea [Recovered/Resolved]
  - Blister [Not Recovered/Not Resolved]
